FAERS Safety Report 5704798-1 (Version None)
Quarter: 2008Q2

REPORT INFORMATION
  Report Type: 
  Country: None (occurrence: None)
  Receive Date: 20080414
  Receipt Date: 20080402
  Transmission Date: 20081010
  Serious: Yes (Other)
  Sender: FDA-Public Use
  Company Number: US-PFIZER INC-2008019438

PATIENT
  Sex: Male
  Weight: 74.8 kg

DRUGS (1)
  1. CHANTIX [Suspect]
     Indication: SMOKING CESSATION THERAPY
     Dates: start: 20070201, end: 20071221

REACTIONS (5)
  - ABNORMAL DREAMS [None]
  - HOMICIDAL IDEATION [None]
  - INCORRECT DOSE ADMINISTERED [None]
  - SMOKER [None]
  - SUICIDAL IDEATION [None]
